FAERS Safety Report 20633972 (Version 2)
Quarter: 2022Q2

REPORT INFORMATION
  Report Type: Spontaneous
  Country: US (occurrence: US)
  Receive Date: 20220324
  Receipt Date: 20220524
  Transmission Date: 20220721
  Serious: No
  Sender: FDA-Public Use
  Company Number: US-BRISTOL-MYERS SQUIBB COMPANY-USA-20220304547

PATIENT
  Age: 77 Year
  Sex: Female

DRUGS (1)
  1. REVLIMID [Suspect]
     Active Substance: LENALIDOMIDE
     Indication: Plasma cell myeloma
     Dosage: 1 CAPSULE (25 MILLIGRAM) DAILY WITH WATER ON DAYS 1-21 THEN 7 DAYS OFF
     Route: 048
     Dates: start: 20210316

REACTIONS (3)
  - Nasopharyngitis [Recovered/Resolved]
  - Cough [Unknown]
  - Wheezing [Unknown]
